FAERS Safety Report 10037128 (Version 1)
Quarter: 2014Q1

REPORT INFORMATION
  Report Type: Spontaneous
  Country: US (occurrence: None)
  Receive Date: 20140324
  Receipt Date: 20140324
  Transmission Date: 20141002
  Serious: Yes (Hospitalization, Disabling)
  Sender: FDA-Public Use
  Company Number: AUR-APL-2014-03397

PATIENT
  Age: 40 Year
  Sex: Female

DRUGS (5)
  1. FAMCICLOVIR [Suspect]
     Indication: CHRONIC HEPATITIS B
  2. LAMIVUDINE [Suspect]
     Indication: CHRONIC HEPATITIS B
  3. ADEFOVIR [Suspect]
     Indication: CHRONIC HEPATITIS B
  4. TENOFOVIR (TENOFOVIR) UNKNOWN [Suspect]
     Indication: CHRONIC HEPATITIS B
     Dosage: 1 D
  5. CONJUGATED ESTROGENS [Suspect]
     Indication: PRODUCT USED FOR UNKNOWN INDICATION

REACTIONS (8)
  - Pain [None]
  - Asthenia [None]
  - Fatigue [None]
  - Hypophagia [None]
  - Flank pain [None]
  - Weight decreased [None]
  - Hepatic necrosis [None]
  - Hepatic fibrosis [None]
